FAERS Safety Report 4456629-8 (Version None)
Quarter: 2004Q3

REPORT INFORMATION
  Report Type: 
  Country: None (occurrence: None)
  Receive Date: 20040921
  Receipt Date: 20040907
  Transmission Date: 20050211
  Serious: Yes (Hospitalization)
  Sender: FDA-Public Use
  Company Number: 2004AP03977

PATIENT
  Age: 60 Year
  Sex: Male

DRUGS (9)
  1. IRESSA [Suspect]
     Indication: LUNG SQUAMOUS CELL CARCINOMA STAGE UNSPECIFIED
     Dosage: 250 MG DAILY PO
     Route: 048
     Dates: start: 20040727, end: 20040730
  2. IRESSA [Suspect]
     Indication: NON-SMALL CELL LUNG CANCER
     Dosage: 250 MG DAILY PO
     Route: 048
     Dates: start: 20040727, end: 20040730
  3. THYRADIN [Concomitant]
  4. CODEINE [Concomitant]
  5. MUCODYNE [Concomitant]
  6. MAGLAX [Concomitant]
  7. AMARYL [Concomitant]
  8. CARBOPLATIN [Concomitant]
  9. PACLITAXEL [Concomitant]

REACTIONS (8)
  - ANGINA UNSTABLE [None]
  - BLOOD CHLORIDE INCREASED [None]
  - BLOOD LACTATE DEHYDROGENASE DECREASED [None]
  - CORONARY ARTERY STENOSIS [None]
  - ELECTROCARDIOGRAM ST SEGMENT DEPRESSION [None]
  - HAEMOGLOBIN DECREASED [None]
  - PERICARDIAL EFFUSION [None]
  - VENTRICULAR EXTRASYSTOLES [None]
